FAERS Safety Report 17780232 (Version 1)
Quarter: 2020Q2

REPORT INFORMATION
  Report Type: Spontaneous
  Country: US (occurrence: US)
  Receive Date: 20200513
  Receipt Date: 20200513
  Transmission Date: 20200714
  Serious: No
  Sender: FDA-Public Use
  Company Number: US-TEVA-2020-US-1234817

PATIENT
  Sex: Male
  Weight: 95.25 kg

DRUGS (1)
  1. PREDNISONE TEVA [Suspect]
     Active Substance: PREDNISONE
     Indication: ADRENAL INSUFFICIENCY
     Dosage: 10 MILLIGRAM DAILY;
     Route: 048

REACTIONS (1)
  - Drug ineffective [Unknown]
